FAERS Safety Report 6999514-X (Version None)
Quarter: 2010Q3

REPORT INFORMATION
  Report Type: 
  Country: None (occurrence: None)
  Receive Date: 20100920
  Receipt Date: 20071217
  Transmission Date: 20110219
  Serious: Yes (Other)
  Sender: FDA-Public Use
  Company Number: US-ASTRAZENECA-2006UW08111

PATIENT
  Age: 14438 Day
  Sex: Female
  Weight: 149.7 kg

DRUGS (15)
  1. SEROQUEL [Suspect]
     Indication: DEPRESSION
     Dosage: 50-300 MG
     Route: 048
     Dates: start: 20030620
  2. SEROQUEL [Suspect]
     Indication: BIPOLAR DISORDER
     Dosage: 50-300 MG
     Route: 048
     Dates: start: 20030620
  3. SEROQUEL [Suspect]
     Dosage: 50-300 MG
     Route: 048
     Dates: start: 20030601, end: 20071031
  4. SEROQUEL [Suspect]
     Dosage: 50-300 MG
     Route: 048
     Dates: start: 20030601, end: 20071031
  5. CLOZARIL [Concomitant]
     Dates: start: 20060101, end: 20070101
  6. LEXAPRO [Concomitant]
  7. KLONOPIN [Concomitant]
  8. DEPAKOTE [Concomitant]
     Dosage: 5-500 MG
     Route: 048
     Dates: start: 20050716
  9. LIPITOR [Concomitant]
     Dosage: 10-20 MG
     Route: 048
     Dates: start: 20050716
  10. PRILOSEC [Concomitant]
     Dosage: 10-20 MG
     Route: 048
     Dates: start: 20050716
  11. HYDROCODONE BITARTRATE AND ACETAMINOPHEN [Concomitant]
     Dosage: 10-650 MG THREE TIMES A DAY
     Route: 048
     Dates: start: 20050716
  12. HYDROCHLOROT [Concomitant]
     Route: 048
     Dates: start: 20051114
  13. ZOCOR [Concomitant]
     Route: 048
     Dates: start: 20060907
  14. LAMICTAL [Concomitant]
     Dosage: 25-100 MG
     Route: 048
     Dates: start: 20060516
  15. GEODON [Concomitant]
     Route: 048
     Dates: start: 20060516

REACTIONS (4)
  - ANGINA PECTORIS [None]
  - ARRHYTHMIA [None]
  - DIABETES MELLITUS [None]
  - TYPE 2 DIABETES MELLITUS [None]
